FAERS Safety Report 13252608 (Version 2)
Quarter: 2017Q1

REPORT INFORMATION
  Report Type: Spontaneous
  Country: US (occurrence: US)
  Receive Date: 20170220
  Receipt Date: 20170324
  Transmission Date: 20170428
  Serious: Yes (Other)
  Sender: FDA-Public Use
  Company Number: US-B.I. PHARMACEUTICALS,INC./RIDGEFIELD-2017-BI-008541

PATIENT
  Age: 74 Year
  Sex: Female
  Weight: 102.51 kg

DRUGS (4)
  1. QUVAR [Concomitant]
     Indication: CHRONIC OBSTRUCTIVE PULMONARY DISEASE
     Dosage: ONE INHALATION ONCE A DAY;  FORM STRENGTH: 80 MCG
     Route: 055
  2. FLOVENT [Concomitant]
     Active Substance: FLUTICASONE PROPIONATE
     Indication: CHRONIC OBSTRUCTIVE PULMONARY DISEASE
     Dosage: ONE TO TWO INHALATIONS TWICE A DAY AS NEEDED;  FORM STRENGTH: 220 MCG
     Route: 055
  3. SPIRIVA [Suspect]
     Active Substance: TIOTROPIUM BROMIDE MONOHYDRATE
     Indication: CHRONIC OBSTRUCTIVE PULMONARY DISEASE
     Route: 048
     Dates: start: 2011
  4. DELTIAZEM [Concomitant]
     Indication: ATRIAL FIBRILLATION
     Dosage: ONE CAPSULE TWICE A DAY;  FORM STRENGTH: 180 MG; FORMULATION: CAPSULE
     Route: 048

REACTIONS (10)
  - Bladder cancer [Recovered/Resolved]
  - Tremor [Recovered/Resolved]
  - Bladder cancer [Recovered/Resolved]
  - Blood urine present [Not Recovered/Not Resolved]
  - Herpes zoster [Recovered/Resolved]
  - Escherichia infection [Not Recovered/Not Resolved]
  - Pain [Recovered/Resolved]
  - Asthenia [Not Recovered/Not Resolved]
  - Hyperhidrosis [Recovered/Resolved]
  - Influenza [Not Recovered/Not Resolved]

NARRATIVE: CASE EVENT DATE: 201208
